FAERS Safety Report 7718261-X (Version None)
Quarter: 2011Q3

REPORT INFORMATION
  Report Type: 
  Country: None (occurrence: None)
  Receive Date: 20110830
  Receipt Date: 20110819
  Transmission Date: 20111222
  Serious: Yes (Hospitalization)
  Sender: FDA-Public Use
  Company Number: PHHY2011ZA74470

PATIENT
  Age: 83 Year
  Sex: Female

DRUGS (3)
  1. ZOLEDRONOC ACID [Suspect]
     Dosage: 5 MG/100 ML SOLUTION FOR INFUSION
     Route: 042
     Dates: start: 20090101
  2. ZOLEDRONOC ACID [Suspect]
     Dosage: 5 MG, UNK
     Route: 042
     Dates: start: 20100101
  3. WARFARIN SODIUM [Concomitant]

REACTIONS (4)
  - PULMONARY EMBOLISM [None]
  - MALAISE [None]
  - SEPSIS [None]
  - CEREBROVASCULAR ACCIDENT [None]
